FAERS Safety Report 12831263 (Version 1)
Quarter: 2016Q4

REPORT INFORMATION
  Report Type: Spontaneous
  Country: RO (occurrence: RO)
  Receive Date: 20161008
  Receipt Date: 20161008
  Transmission Date: 20170207
  Serious: Yes (Life-Threatening, Hospitalization)
  Sender: FDA-Public Use
  Company Number: RO-UCBSA-2016038699

PATIENT
  Age: 81 Year
  Sex: Male

DRUGS (7)
  1. VASAPROSTAN [Suspect]
     Active Substance: ALPROSTADIL
     Dosage: 1 AMPOULE/DAY
     Route: 042
     Dates: start: 20160907, end: 20160913
  2. CODEINE PHOSPHATE [Concomitant]
     Active Substance: CODEINE PHOSPHATE
     Indication: PAIN
     Dosage: 3/DAY
     Route: 048
     Dates: start: 20160907
  3. VASAPROSTAN [Suspect]
     Active Substance: ALPROSTADIL
     Indication: PERIPHERAL ARTERIAL OCCLUSIVE DISEASE
     Dosage: UNK
  4. ASPENTER [Concomitant]
     Active Substance: ASPIRIN
     Indication: PERIPHERAL ARTERIAL OCCLUSIVE DISEASE
     Dosage: 75 MG, ONCE DAILY (QD)
     Route: 048
     Dates: start: 20160907
  5. BROMAZEPAM [Concomitant]
     Active Substance: BROMAZEPAM
     Indication: PSYCHOMOTOR HYPERACTIVITY
     Dosage: 3 MG/DAY
     Route: 048
     Dates: start: 20160912
  6. SODIUM CHLORIDE. [Suspect]
     Active Substance: SODIUM CHLORIDE
     Indication: ARTERIAL OCCLUSIVE DISEASE
     Dosage: UNK
  7. SODIUM CHLORIDE. [Suspect]
     Active Substance: SODIUM CHLORIDE
     Dosage: 500 ML/DAY (SODIUM CHLORIDE SOLUTION 0.9% )
     Route: 042
     Dates: start: 20160907, end: 20160913

REACTIONS (7)
  - Hypertension [Recovered/Resolved]
  - Back pain [Recovered/Resolved]
  - Chills [Recovered/Resolved]
  - Pyrexia [Recovered/Resolved]
  - Oxygen saturation decreased [Recovered/Resolved]
  - Cyanosis [Recovered/Resolved]
  - Psychomotor hyperactivity [Recovered/Resolved]

NARRATIVE: CASE EVENT DATE: 20160913
